FAERS Safety Report 10936708 (Version 1)
Quarter: 2015Q1

REPORT INFORMATION
  Report Type: Spontaneous
  Country: US (occurrence: None)
  Receive Date: 20150212
  Receipt Date: 20150212
  Transmission Date: 20150721
  Serious: No
  Sender: FDA-Public Use
  Company Number: TPA2011A00487

PATIENT
  Age: 77 Year
  Sex: Female
  Weight: 68.49 kg

DRUGS (6)
  1. TORSEMIDE (TORASEMIDE) [Concomitant]
  2. POTASSIUM (POTASSIUM) [Concomitant]
     Active Substance: POTASSIUM
  3. COUMADIN [Concomitant]
     Active Substance: WARFARIN SODIUM
  4. INSPRA [Concomitant]
     Active Substance: EPLERENONE
  5. DIOVAN [Concomitant]
     Active Substance: VALSARTAN
  6. ULORIC [Suspect]
     Active Substance: FEBUXOSTAT
     Indication: GOUT
     Route: 048
     Dates: start: 201009, end: 20101014

REACTIONS (7)
  - Asthenia [None]
  - Oedema peripheral [None]
  - Gait disturbance [None]
  - Weight decreased [None]
  - Joint swelling [None]
  - Frequent bowel movements [None]
  - Blood uric acid increased [None]

NARRATIVE: CASE EVENT DATE: 201009
